FAERS Safety Report 17052639 (Version 1)
Quarter: 2019Q4

REPORT INFORMATION
  Report Type: Report from Study
  Country: GB (occurrence: GB)
  Receive Date: 20191120
  Receipt Date: 20191120
  Transmission Date: 20200122
  Serious: Yes (Other)
  Sender: FDA-Public Use
  Company Number: GB-ROCHE-2473772

PATIENT
  Age: 67 Year
  Sex: Male

DRUGS (1)
  1. TENECTEPLASE [Suspect]
     Active Substance: TENECTEPLASE
     Indication: ISCHAEMIC STROKE
     Route: 042
     Dates: start: 20191104

REACTIONS (1)
  - Neurological decompensation [Recovered/Resolved]

NARRATIVE: CASE EVENT DATE: 20191104
